FAERS Safety Report 12773243 (Version 1)
Quarter: 2016Q3

REPORT INFORMATION
  Report Type: Spontaneous
  Country: US (occurrence: US)
  Receive Date: 20160922
  Receipt Date: 20160922
  Transmission Date: 20161109
  Serious: No
  Sender: FDA-Public Use
  Company Number: US-ALLERGAN-1657123US

PATIENT
  Sex: Female
  Weight: 68.3 kg

DRUGS (2)
  1. AMOXICILLIN. [Concomitant]
     Active Substance: AMOXICILLIN
     Dosage: UNK UNK, BID
  2. LILETTA [Suspect]
     Active Substance: LEVONORGESTREL
     Indication: MENORRHAGIA
     Dosage: 52 MG
     Route: 015
     Dates: start: 20150520, end: 20150928

REACTIONS (5)
  - Alopecia [Recovered/Resolved]
  - Stress [Unknown]
  - Gastrooesophageal reflux disease [Recovered/Resolved]
  - Eczema [Unknown]
  - Abdominal discomfort [Recovered/Resolved]
